FAERS Safety Report 18164740 (Version 16)
Quarter: 2024Q1

REPORT INFORMATION
  Report Type: Spontaneous
  Country: CA (occurrence: CA)
  Receive Date: 20200819
  Receipt Date: 20240117
  Transmission Date: 20240410
  Serious: Yes (Other)
  Sender: FDA-Public Use
  Company Number: CA-CELLTRION INC.-2020CA019366

PATIENT

DRUGS (31)
  1. INFLECTRA [Suspect]
     Active Substance: INFLIXIMAB-DYYB
     Indication: Colitis ulcerative
     Dosage: 400 MG EVERY 0, 2, 6 WEEKS, EVERY 8 WEEKS
     Route: 042
     Dates: start: 20190910, end: 20200618
  2. INFLECTRA [Suspect]
     Active Substance: INFLIXIMAB-DYYB
     Dosage: 400 MG (5 MG/KG) 0, 2, 6 THEN EVERY 8 WEEKS
     Route: 042
     Dates: start: 20191217
  3. INFLECTRA [Suspect]
     Active Substance: INFLIXIMAB-DYYB
     Dosage: 400 MG (5 MG/KG) 0, 2, 6 THEN EVERY 8 WEEKS
     Route: 042
     Dates: start: 20200224
  4. INFLECTRA [Suspect]
     Active Substance: INFLIXIMAB-DYYB
     Dosage: 400 MG (5 MG/KG) 0, 2, 6 THEN EVERY 8 WEEKS
     Route: 042
     Dates: start: 20200420
  5. INFLECTRA [Suspect]
     Active Substance: INFLIXIMAB-DYYB
     Dosage: 400 MG (5 MG/KG) 0, 2, 6 THEN EVERY 8 WEEKS
     Route: 042
     Dates: start: 20200618
  6. INFLECTRA [Suspect]
     Active Substance: INFLIXIMAB-DYYB
     Dosage: 10 MG/KG, EVERY 6 WEEKS
     Route: 042
     Dates: start: 20200811, end: 20210317
  7. INFLECTRA [Suspect]
     Active Substance: INFLIXIMAB-DYYB
     Dosage: 10 MG/KG, EVERY 6 WEEKS
     Route: 042
     Dates: start: 20200922
  8. INFLECTRA [Suspect]
     Active Substance: INFLIXIMAB-DYYB
     Dosage: 10 MG/KG, EVERY 6 WEEKS
     Route: 042
     Dates: start: 20201106, end: 20201106
  9. INFLECTRA [Suspect]
     Active Substance: INFLIXIMAB-DYYB
     Dosage: 10 MG/KG, EVERY 8 WEEK
     Route: 042
     Dates: start: 20210512, end: 20220803
  10. INFLECTRA [Suspect]
     Active Substance: INFLIXIMAB-DYYB
     Dosage: 10 MG/KG, EVERY 8 WEEKS
     Route: 042
     Dates: start: 20210706
  11. INFLECTRA [Suspect]
     Active Substance: INFLIXIMAB-DYYB
     Dosage: 1000 MG
     Route: 042
     Dates: start: 20210831
  12. INFLECTRA [Suspect]
     Active Substance: INFLIXIMAB-DYYB
     Dosage: 1000 MG (10MG/KG, EVERY 8 WEEKS)
     Route: 042
     Dates: start: 20211027
  13. INFLECTRA [Suspect]
     Active Substance: INFLIXIMAB-DYYB
     Dosage: 1000 MG (10MG/KG, EVERY 8 WEEKS)(PATIENT IS SUPPOSED TO RECEIVE 10MG/KG)
     Route: 042
     Dates: start: 20211222
  14. INFLECTRA [Suspect]
     Active Substance: INFLIXIMAB-DYYB
     Dosage: 1000 MG,(10MG/KG, EVERY 8 WEEKS)(PATIENT IS SUPPOSED TO RECEIVE 10MG/KG)
     Route: 042
     Dates: start: 20220215
  15. INFLECTRA [Suspect]
     Active Substance: INFLIXIMAB-DYYB
     Dosage: 1000 MG,(10MG/KG, EVERY 8 WEEKS)(PATIENT IS SUPPOSED TO RECEIVE 10MG/KG)
     Route: 042
     Dates: start: 20220215
  16. INFLECTRA [Suspect]
     Active Substance: INFLIXIMAB-DYYB
     Dosage: 1000 MG,(10MG/KG, EVERY 8 WEEKS)(PATIENT IS SUPPOSED TO RECEIVE 10MG/KG)
     Route: 042
     Dates: start: 20220606
  17. INFLECTRA [Suspect]
     Active Substance: INFLIXIMAB-DYYB
     Dosage: 5 MG/KG, EVERY 8 WEEK
     Route: 042
     Dates: start: 20220926, end: 20230327
  18. INFLECTRA [Suspect]
     Active Substance: INFLIXIMAB-DYYB
     Dosage: 5 MG/KG (496MG), 9 WEEKS 4 DAYS (EVERY 8 WEEKS)
     Route: 042
     Dates: start: 20230130
  19. INFLECTRA [Suspect]
     Active Substance: INFLIXIMAB-DYYB
     Dosage: 5 MG/KG (496MG), 9 WEEKS 4 DAYS (EVERY 8 WEEKS)
     Route: 042
     Dates: start: 20230130
  20. INFLECTRA [Suspect]
     Active Substance: INFLIXIMAB-DYYB
     Dosage: 480 MG (SUPPOSE TO RECEIVE 700MG), AFTER 9 WEEK(SUPPOSE TO RECEIVE EVERY 8 WEEK)
     Route: 042
     Dates: start: 20230530
  21. INFLECTRA [Suspect]
     Active Substance: INFLIXIMAB-DYYB
     Dosage: 220 MG, TOP UP DOSE TO COMPLETE 30MAY2023
     Route: 042
     Dates: start: 20230622, end: 20230622
  22. INFLECTRA [Suspect]
     Active Substance: INFLIXIMAB-DYYB
     Dosage: 700 MG (EVERY 4 WEEK) TOP UP DOSE TO COMPLETE 30MAY2023
     Route: 042
     Dates: start: 20230720
  23. INFLECTRA [Suspect]
     Active Substance: INFLIXIMAB-DYYB
     Dosage: 700 MG, EVERY 8 WEEK
     Route: 042
     Dates: start: 20230919
  24. INFLECTRA [Suspect]
     Active Substance: INFLIXIMAB-DYYB
     Dosage: 700 MG, EVERY 8 WEEKS (10 WEEKS AND 6 DAYS)
     Route: 042
     Dates: start: 20231204
  25. ASACOL [Concomitant]
     Active Substance: MESALAMINE
     Dosage: 3.2 G
     Route: 048
  26. ASACOL [Concomitant]
     Active Substance: MESALAMINE
     Dosage: 4.8 G (1 DF), 1X/DAY
     Route: 048
     Dates: start: 20190516
  27. BUDESONIDE [Concomitant]
     Active Substance: BUDESONIDE
     Dosage: 9 MG, 1X/DAY
     Route: 048
     Dates: start: 20190516
  28. BUDESONIDE [Concomitant]
     Active Substance: BUDESONIDE
     Dosage: UNK
  29. MERCAPTOPURINE [Concomitant]
     Active Substance: MERCAPTOPURINE
     Dosage: 1 DF DOSAGE INFO NOT AVAILABLE
     Route: 065
  30. MERCAPTOPURINE [Concomitant]
     Active Substance: MERCAPTOPURINE
     Dosage: 1 DF, DOSAGE INFO NOT AVAILABLE
     Route: 065
  31. PENTASA [Concomitant]
     Active Substance: MESALAMINE
     Dosage: UNK

REACTIONS (20)
  - Lower respiratory tract infection [Not Recovered/Not Resolved]
  - Condition aggravated [Recovered/Resolved]
  - Pain [Recovered/Resolved]
  - Peripheral swelling [Recovered/Resolved]
  - Drug specific antibody present [Unknown]
  - Drug level below therapeutic [Unknown]
  - Drug level above therapeutic [Unknown]
  - Eczema [Recovering/Resolving]
  - Eczema asteatotic [Recovering/Resolving]
  - Pruritus [Unknown]
  - Psoriasis [Unknown]
  - Skin lesion [Recovering/Resolving]
  - Insomnia [Not Recovered/Not Resolved]
  - Cardiovascular disorder [Unknown]
  - Poor venous access [Recovered/Resolved]
  - Incorrect dose administered [Unknown]
  - Inappropriate schedule of product administration [Unknown]
  - Off label use [Unknown]
  - Intentional product use issue [Unknown]
  - Off label use [Unknown]

NARRATIVE: CASE EVENT DATE: 20200811
